FAERS Safety Report 5087940-8 (Version None)
Quarter: 2006Q3

REPORT INFORMATION
  Report Type: 
  Country: None (occurrence: None)
  Receive Date: 20060822
  Receipt Date: 20060822
  Transmission Date: 20061208
  Serious: Yes (Hospitalization)
  Sender: FDA-Public Use
  Company Number: None

PATIENT
  Age: 70 Year
  Sex: Male

DRUGS (9)
  1. MEFLOQUINE [Suspect]
     Indication: MALARIA
     Dosage: PO
     Route: 048
     Dates: start: 20060201, end: 20060205
  2. CHLOROQUINE [Suspect]
     Indication: MALARIA
     Dosage: PO
     Route: 048
     Dates: start: 20050102, end: 20060105
  3. NITROGLYCERIN [Concomitant]
  4. TOPROL-XL [Concomitant]
  5. ASPIRIN [Concomitant]
  6. LORATADINE [Concomitant]
  7. PLAVIX [Concomitant]
  8. LOTREL [Concomitant]
  9. PRAVACHOL [Concomitant]

REACTIONS (8)
  - ANOREXIA [None]
  - ASTHENIA [None]
  - DUODENITIS [None]
  - GASTRITIS [None]
  - INFECTION [None]
  - LEUKOCYTOCLASTIC VASCULITIS [None]
  - NONSPECIFIC REACTION [None]
  - RASH [None]
